FAERS Safety Report 17137804 (Version 4)
Quarter: 2020Q1

REPORT INFORMATION
  Report Type: Spontaneous
  Country: NL (occurrence: NL)
  Receive Date: 20191211
  Receipt Date: 20200220
  Transmission Date: 20200409
  Serious: Yes (Other)
  Sender: FDA-Public Use
  Company Number: NL-AUROBINDO-AUR-APL-2019-104356

PATIENT
  Age: 86 Year
  Sex: Female

DRUGS (18)
  1. ACETYLSALICYLIC ACID [Concomitant]
     Active Substance: ASPIRIN
     Indication: PRODUCT USED FOR UNKNOWN INDICATION
     Dosage: UNK
     Route: 065
  2. METOCLOPRAMIDE. [Concomitant]
     Active Substance: METOCLOPRAMIDE
     Indication: PRODUCT USED FOR UNKNOWN INDICATION
     Dosage: UNK
     Route: 065
  3. DEXAMETHASON [Suspect]
     Active Substance: DEXAMETHASONE
     Dosage: 20 MILLIGRAM, EVERY WEEK
     Route: 048
     Dates: start: 20181115, end: 20181213
  4. TEMAZEPAM. [Concomitant]
     Active Substance: TEMAZEPAM
     Indication: PRODUCT USED FOR UNKNOWN INDICATION
     Dosage: UNK
     Route: 065
  5. ZOLEDRONIC ACID [Concomitant]
     Active Substance: ZOLEDRONIC ACID
     Indication: PRODUCT USED FOR UNKNOWN INDICATION
     Dosage: UNK
     Route: 065
  6. DEXAMETHASON [Suspect]
     Active Substance: DEXAMETHASONE
     Dosage: 10 MILLIGRAM, EVERY WEEK
     Route: 048
     Dates: start: 20190405, end: 20190502
  7. REVLIMID [Suspect]
     Active Substance: LENALIDOMIDE
     Dosage: 15 MILLIGRAM, ONCE A DAY
     Route: 048
     Dates: start: 20190503, end: 20190524
  8. PANTOPRAZOL [Concomitant]
     Active Substance: PANTOPRAZOLE SODIUM
     Indication: PRODUCT USED FOR UNKNOWN INDICATION
     Dosage: UNK
     Route: 065
  9. DEXAMETHASON [Suspect]
     Active Substance: DEXAMETHASONE
     Indication: PLASMA CELL MYELOMA
     Dosage: 20 MILLIGRAM, EVERY WEEK
     Route: 048
     Dates: start: 20180920, end: 20181017
  10. DEXAMETHASON [Suspect]
     Active Substance: DEXAMETHASONE
     Dosage: 20 MILLIGRAM, EVERY WEEK
     Route: 048
     Dates: start: 20181018, end: 20181114
  11. REVLIMID [Suspect]
     Active Substance: LENALIDOMIDE
     Indication: PLASMA CELL MYELOMA
     Dosage: 15 MILLIGRAM, ONCE A DAY
     Route: 048
     Dates: start: 20180920, end: 20181011
  12. REVLIMID [Suspect]
     Active Substance: LENALIDOMIDE
     Dosage: 15 MILLIGRAM, ONCE A DAY
     Route: 048
     Dates: start: 20181018, end: 20181108
  13. REVLIMID [Suspect]
     Active Substance: LENALIDOMIDE
     Dosage: 15 MILLIGRAM, ONCE A DAY
     Route: 048
     Dates: start: 20181115, end: 20181206
  14. COTRIMOXAZOL [Concomitant]
     Active Substance: SULFAMETHOXAZOLE\TRIMETHOPRIM
     Indication: PRODUCT USED FOR UNKNOWN INDICATION
     Dosage: UNK
     Route: 065
  15. DEXAMETHASON [Suspect]
     Active Substance: DEXAMETHASONE
     Dosage: 10 MILLIGRAM, EVERY WEEK
     Route: 048
     Dates: start: 20190308, end: 20190404
  16. DEXAMETHASON [Suspect]
     Active Substance: DEXAMETHASONE
     Dosage: 10 MILLIGRAM, EVERY WEEK
     Route: 048
     Dates: start: 20190503, end: 20190530
  17. REVLIMID [Suspect]
     Active Substance: LENALIDOMIDE
     Dosage: 15 MILLIGRAM, ONCE A DAY
     Route: 048
     Dates: start: 20190308, end: 20190329
  18. REVLIMID [Suspect]
     Active Substance: LENALIDOMIDE
     Dosage: 15 MILLIGRAM, ONCE A DAY
     Route: 048
     Dates: start: 20190405, end: 20190426

REACTIONS (2)
  - Pneumonia [Recovered/Resolved]
  - Hypogammaglobulinaemia [Unknown]

NARRATIVE: CASE EVENT DATE: 201809
